FAERS Safety Report 18959283 (Version 1)
Quarter: 2021Q1

REPORT INFORMATION
  Report Type: Spontaneous
  Country: US (occurrence: US)
  Receive Date: 20210302
  Receipt Date: 20210302
  Transmission Date: 20210420
  Serious: No
  Sender: FDA-Public Use
  Company Number: US-ELI_LILLY_AND_COMPANY-US202102006511

PATIENT
  Age: 67 Year
  Sex: Female

DRUGS (1)
  1. BAMLANIVIMAB 700MG [Suspect]
     Active Substance: BAMLANIVIMAB
     Indication: COVID-19
     Dosage: 700 MG, SINGLE
     Route: 042
     Dates: start: 20201127, end: 20201127

REACTIONS (5)
  - Ageusia [Recovered/Resolved]
  - Parosmia [Recovered/Resolved]
  - Anosmia [Recovered/Resolved]
  - Nasopharyngitis [Not Recovered/Not Resolved]
  - Pharyngeal erythema [Unknown]

NARRATIVE: CASE EVENT DATE: 202101
